FAERS Safety Report 11980467 (Version 1)
Quarter: 2016Q1

REPORT INFORMATION
  Report Type: Spontaneous
  Country: US (occurrence: US)
  Receive Date: 20160129
  Receipt Date: 20160129
  Transmission Date: 20160526
  Serious: Yes (Other)
  Sender: FDA-Public Use
  Company Number: US-PFIZER INC-2016040100

PATIENT
  Age: 27 Year
  Sex: Female
  Weight: 54.43 kg

DRUGS (1)
  1. XANAX [Suspect]
     Active Substance: ALPRAZOLAM
     Indication: ANXIETY
     Dosage: 0.5 MG, 2X/DAY (EVERY 12 HOUR)
     Route: 048
     Dates: start: 201511

REACTIONS (2)
  - Memory impairment [Unknown]
  - Amnesia [Unknown]

NARRATIVE: CASE EVENT DATE: 201511
